FAERS Safety Report 5012300-5 (Version None)
Quarter: 2006Q2

REPORT INFORMATION
  Report Type: 
  Country: None (occurrence: None)
  Receive Date: 20060410
  Receipt Date: 20050406
  Transmission Date: 20061013
  Serious: No
  Sender: FDA-Public Use
  Company Number: 05P-163-0296702-00

PATIENT
  Sex: Female
  Weight: 77.1115 kg

DRUGS (2)
  1. DEPAKOTE [Suspect]
  2. RISPERDAL CONSTA [Suspect]
     Dosage: 50 MG, 1 IN 2 WK, INTRAMUSCULAR
     Route: 030
     Dates: start: 20041101

REACTIONS (1)
  - WEIGHT INCREASED [None]
